FAERS Safety Report 4806614-9 (Version None)
Quarter: 2005Q4

REPORT INFORMATION
  Report Type: 
  Country: None (occurrence: None)
  Receive Date: 20051021
  Receipt Date: 20051010
  Transmission Date: 20060501
  Serious: Yes (Death, Hospitalization)
  Sender: FDA-Public Use
  Company Number: US-JNJFOC-20050702715

PATIENT
  Sex: Female

DRUGS (2)
  1. ORTHO EVRA [Suspect]
     Indication: DRUG USE FOR UNKNOWN INDICATION
     Route: 062
  2. LORA TAB [Concomitant]
     Indication: HEADACHE
     Route: 048

REACTIONS (10)
  - CEREBRAL HAEMORRHAGE [None]
  - CEREBROVASCULAR ACCIDENT [None]
  - CONFUSIONAL STATE [None]
  - DRUG SCREEN POSITIVE [None]
  - GRAND MAL CONVULSION [None]
  - HYPERCOAGULATION [None]
  - INTRACRANIAL VENOUS SINUS THROMBOSIS [None]
  - SINUS BRADYCARDIA [None]
  - STATUS EPILEPTICUS [None]
  - VASCULITIS [None]
